FAERS Safety Report 9693080 (Version 1)
Quarter: 2013Q4

REPORT INFORMATION
  Report Type: Spontaneous
  Country: US (occurrence: US)
  Receive Date: 20131118
  Receipt Date: 20131118
  Transmission Date: 20140711
  Serious: No
  Sender: FDA-Public Use
  Company Number: US-BAYER-2013-140571

PATIENT
  Age: 21 Year
  Sex: Female

DRUGS (2)
  1. MAGNEVIST [Suspect]
     Indication: NUCLEAR MAGNETIC RESONANCE IMAGING BRAIN
     Dosage: UNK UNK, ONCE
  2. MAGNEVIST [Suspect]
     Indication: HYPOAESTHESIA

REACTIONS (1)
  - Urticaria [Recovered/Resolved]
